FAERS Safety Report 17886693 (Version 2)
Quarter: 2021Q1

REPORT INFORMATION
  Report Type: Spontaneous
  Country: US (occurrence: US)
  Receive Date: 20200612
  Receipt Date: 20210311
  Transmission Date: 20210419
  Serious: Yes (Hospitalization)
  Sender: FDA-Public Use
  Company Number: US-TEVA-2020-US-1247916

PATIENT
  Age: 46 Year
  Sex: Female
  Weight: 92 kg

DRUGS (27)
  1. LOSARTAN RISING PHARMACEUTICALS [Suspect]
     Active Substance: LOSARTAN
     Route: 065
     Dates: start: 20150128, end: 20150218
  2. LOSARTAN RISING PHARMACEUTICALS [Suspect]
     Active Substance: LOSARTAN
     Route: 065
     Dates: start: 20150305, end: 20150326
  3. NAPROXEN. [Concomitant]
     Active Substance: NAPROXEN
     Route: 065
     Dates: start: 201305
  4. ONDANSETRON [Concomitant]
     Active Substance: ONDANSETRON
     Indication: VOMITING
  5. LOSARTAN TEVA [Suspect]
     Active Substance: LOSARTAN
     Indication: HYPERTENSION
     Route: 065
     Dates: start: 20150403, end: 20150424
  6. LOSARTAN RISING PHARMACEUTICALS [Suspect]
     Active Substance: LOSARTAN
     Indication: HYPERTENSION
     Route: 065
     Dates: start: 20140502, end: 20140726
  7. LOSARTAN RISING PHARMACEUTICALS [Suspect]
     Active Substance: LOSARTAN
     Route: 065
     Dates: start: 20150403, end: 20150824
  8. LOSARTAN RISING PHARMACEUTICALS [Suspect]
     Active Substance: LOSARTAN
     Route: 065
     Dates: start: 20151125, end: 20160325
  9. LOSARTAN ACETRIS [Suspect]
     Active Substance: LOSARTAN
     Indication: HYPERTENSION
     Route: 065
     Dates: start: 20180426, end: 20181019
  10. TRAMADOL. [Concomitant]
     Active Substance: TRAMADOL
     Route: 065
     Dates: start: 200807, end: 200811
  11. NAPROXEN. [Concomitant]
     Active Substance: NAPROXEN
     Indication: PAIN
     Route: 065
     Dates: start: 201303
  12. CIPROFLOXACIN. [Concomitant]
     Active Substance: CIPROFLOXACIN
     Indication: BACTERIAL INFECTION
     Route: 065
     Dates: start: 201407
  13. TRAMADOL. [Concomitant]
     Active Substance: TRAMADOL
     Indication: PAIN
     Route: 065
     Dates: start: 200801, end: 2011
  14. LOSARTAN RISING PHARMACEUTICALS [Suspect]
     Active Substance: LOSARTAN
     Route: 065
     Dates: start: 20140729, end: 20150125
  15. LOSARTAN TORRENT PHARMACEUTICALS [Suspect]
     Active Substance: LOSARTAN
     Indication: HYPERTENSION
     Route: 065
     Dates: start: 20160419, end: 20170228
  16. TRAMADOL. [Concomitant]
     Active Substance: TRAMADOL
     Route: 065
     Dates: start: 20130131
  17. ULTRAM [Concomitant]
     Active Substance: TRAMADOL HYDROCHLORIDE
     Dosage: AS NEEDED FOR UP TO 10 DAYS
     Route: 048
  18. ADALAT CC [Concomitant]
     Active Substance: NIFEDIPINE
     Route: 048
  19. LOSARTAN RISING PHARMACEUTICALS [Suspect]
     Active Substance: LOSARTAN
     Route: 065
     Dates: start: 20150221, end: 20150305
  20. ONDANSETRON [Concomitant]
     Active Substance: ONDANSETRON
     Indication: NAUSEA
     Route: 065
     Dates: start: 201407
  21. CELEBREX [Concomitant]
     Active Substance: CELECOXIB
     Indication: PAIN
     Dosage: 400 MILLIGRAM DAILY; AS NEEDED
     Route: 048
  22. CYMBALTA [Concomitant]
     Active Substance: DULOXETINE HYDROCHLORIDE
     Route: 065
     Dates: start: 20010109
  23. LOSARTAN RISING PHARMACEUTICALS [Suspect]
     Active Substance: LOSARTAN
     Route: 065
     Dates: start: 20150824, end: 20151105
  24. LOSARTAN RISING PHARMACEUTICALS [Suspect]
     Active Substance: LOSARTAN
     Route: 065
     Dates: start: 20151110, end: 20151122
  25. OXAPROZIN. [Concomitant]
     Active Substance: OXAPROZIN
     Indication: ARTHRITIS
     Route: 065
     Dates: start: 20111003
  26. SAVELLA [Concomitant]
     Active Substance: MILNACIPRAN HYDROCHLORIDE
     Indication: DEPRESSION
     Route: 065
  27. NORCO [Concomitant]
     Active Substance: ACETAMINOPHEN\HYDROCODONE BITARTRATE
     Indication: PAIN
     Dosage: ACETAMINOPHEN 325 MG AND HYDROCODONE 5MG AS NEEDED

REACTIONS (1)
  - Small intestine carcinoma [Unknown]
